FAERS Safety Report 24221957 (Version 1)
Quarter: 2024Q3

REPORT INFORMATION
  Report Type: Spontaneous
  Country: US (occurrence: US)
  Receive Date: 20240819
  Receipt Date: 20240819
  Transmission Date: 20241017
  Serious: Yes (Other)
  Sender: AMGEN
  Company Number: US-AMGEN-USASP2024159976

PATIENT
  Age: 75 Year
  Sex: Female

DRUGS (2)
  1. BEVACIZUMAB [Suspect]
     Active Substance: BEVACIZUMAB
     Indication: Non-small cell lung cancer metastatic
     Dosage: 15 MILLIGRAM/KILOGRAM, TWO CYCLES
     Route: 065
  2. ERLOTINIB [Concomitant]
     Active Substance: ERLOTINIB
     Indication: Non-small cell lung cancer metastatic
     Dosage: 150 MILLIGRAM, QD FRO 2.5 MONTHS
     Route: 065

REACTIONS (4)
  - Non-small cell lung cancer [Recovering/Resolving]
  - Metastases to meninges [Unknown]
  - Hypertension [Unknown]
  - Rash [Unknown]
